FAERS Safety Report 17854583 (Version 2)
Quarter: 2020Q3

REPORT INFORMATION
  Report Type: Spontaneous
  Country: US (occurrence: US)
  Receive Date: 20200603
  Receipt Date: 20200818
  Transmission Date: 20201103
  Serious: No
  Sender: FDA-Public Use
  Company Number: US-PFIZER INC-2020194740

PATIENT
  Age: 3 Year
  Sex: Female

DRUGS (2)
  1. GENOTROPIN [Suspect]
     Active Substance: SOMATROPIN
     Dosage: 0.6 MG
  2. GENOTROPIN [Suspect]
     Active Substance: SOMATROPIN
     Dosage: 0.12 ML, DAILY
     Dates: start: 20170710

REACTIONS (5)
  - Poor quality device used [Unknown]
  - Injection site haemorrhage [Unknown]
  - Device leakage [Unknown]
  - Device breakage [Unknown]
  - Product prescribing error [Unknown]
